FAERS Safety Report 9524530 (Version 1)
Quarter: 2013Q3

REPORT INFORMATION
  Report Type: Spontaneous
  Country: US (occurrence: US)
  Receive Date: 20130916
  Receipt Date: 20130916
  Transmission Date: 20140515
  Serious: No
  Sender: FDA-Public Use
  Company Number: US-PFIZER INC-2013263864

PATIENT
  Age: 27 Year
  Sex: Female

DRUGS (1)
  1. QUILLIVANT XR [Suspect]
     Dosage: 8 CC, UNK

REACTIONS (1)
  - Drug effect incomplete [Unknown]
